FAERS Safety Report 10953139 (Version 1)
Quarter: 2015Q1

REPORT INFORMATION
  Report Type: Spontaneous
  Country: US (occurrence: US)
  Receive Date: 20150325
  Receipt Date: 20150325
  Transmission Date: 20150721
  Serious: No
  Sender: FDA-Public Use
  Company Number: US-MYLANLABS-2014S1006411

PATIENT
  Sex: Male

DRUGS (5)
  1. ALLOPURINOL TABLETS, USP [Suspect]
     Active Substance: ALLOPURINOL
     Dosage: UNK
     Route: 048
     Dates: start: 201311
  2. POTASSIUM [Concomitant]
     Active Substance: POTASSIUM
     Dosage: UNK
     Route: 048
     Dates: start: 201311
  3. TAMSULOSIN [Concomitant]
     Active Substance: TAMSULOSIN
     Dosage: UNK
     Route: 048
     Dates: start: 201311
  4. AMILORIDE HYDROCHLORIDE. [Suspect]
     Active Substance: AMILORIDE HYDROCHLORIDE
     Dosage: UNK
     Route: 048
     Dates: start: 201311
  5. CHLORTHALIDONE TABLETS USP [Suspect]
     Active Substance: CHLORTHALIDONE
     Dosage: 12.5 MG,QD
     Route: 048
     Dates: start: 201311

REACTIONS (1)
  - Gastric disorder [Not Recovered/Not Resolved]
